FAERS Safety Report 16053134 (Version 2)
Quarter: 2019Q1

REPORT INFORMATION
  Report Type: Report from Study
  Country: US (occurrence: US)
  Receive Date: 20190308
  Receipt Date: 20190325
  Transmission Date: 20190418
  Serious: Yes (Hospitalization)
  Sender: FDA-Public Use
  Company Number: US-SA-2019SA063211

PATIENT
  Age: 61 Year
  Sex: Male

DRUGS (2)
  1. DRONEDARONE [Suspect]
     Active Substance: DRONEDARONE
     Indication: ATRIAL FIBRILLATION
     Dosage: 400 MG, BID
     Route: 048
  2. DRONEDARONE [Suspect]
     Active Substance: DRONEDARONE
     Indication: ARRHYTHMIA

REACTIONS (1)
  - Cardiac disorder [Unknown]
